FAERS Safety Report 10881539 (Version 2)
Quarter: 2015Q1

REPORT INFORMATION
  Report Type: Spontaneous
  Country: BR (occurrence: BR)
  Receive Date: 20150303
  Receipt Date: 20150309
  Transmission Date: 20150721
  Serious: Yes (Hospitalization, Other)
  Sender: FDA-Public Use
  Company Number: BR-ASTRAZENECA-2015SE18406

PATIENT
  Age: 41 Year
  Sex: Male
  Weight: 85 kg

DRUGS (6)
  1. GALVUS MET [Suspect]
     Active Substance: METFORMIN HYDROCHLORIDE\VILDAGLIPTIN
     Indication: DIABETES MELLITUS
     Dosage: 50/1000MG
     Route: 048
     Dates: start: 2000
  2. ASA [Concomitant]
     Active Substance: ASPIRIN
  3. LIPANON [Concomitant]
     Active Substance: FENOFIBRATE
  4. DIOVAN AMLO FIX [Concomitant]
     Active Substance: AMLODIPINE\VALSARTAN
     Dosage: 320/5MG
     Dates: start: 2000
  5. CRESTOR [Suspect]
     Active Substance: ROSUVASTATIN CALCIUM
     Route: 048
     Dates: end: 201502
  6. DIAMICRON [Concomitant]
     Active Substance: GLICLAZIDE
     Dates: start: 2000

REACTIONS (2)
  - Diabetes mellitus [Unknown]
  - Arterial occlusive disease [Recovered/Resolved]

NARRATIVE: CASE EVENT DATE: 2000
